FAERS Safety Report 19132264 (Version 2)
Quarter: 2021Q3

REPORT INFORMATION
  Report Type: Spontaneous
  Country: US (occurrence: US)
  Receive Date: 20210413
  Receipt Date: 20210709
  Transmission Date: 20211014
  Serious: Yes (Other)
  Sender: FDA-Public Use
  Company Number: US-TEVA-2021-US-1899815

PATIENT
  Sex: Male

DRUGS (3)
  1. VALSARTAN MYLAN PHARMACEUTICALS [Suspect]
     Active Substance: VALSARTAN
     Indication: HYPERTENSION
     Route: 065
     Dates: start: 20150129, end: 20160227
  2. VALSARTAN AUROBINDO PHARMA [Suspect]
     Active Substance: VALSARTAN
     Indication: HYPERTENSION
     Route: 065
     Dates: start: 20160825, end: 20171228
  3. VALSARTAN SOLCO HEALTHCARE [Suspect]
     Active Substance: VALSARTAN
     Indication: HYPERTENSION
     Route: 065
     Dates: start: 20161129, end: 20180930

REACTIONS (1)
  - Colorectal cancer [Unknown]
